FAERS Safety Report 8524375-7 (Version None)
Quarter: 2012Q3

REPORT INFORMATION
  Report Type: 
  Country: None (occurrence: None)
  Receive Date: 20120720
  Receipt Date: 20120712
  Transmission Date: 20120928
  Serious: Yes (Other)
  Sender: FDA-Public Use
  Company Number: US-ASTRAZENECA-2012SE48790

PATIENT
  Age: 65 Year
  Sex: Female

DRUGS (8)
  1. ASPIRIN [Concomitant]
  2. PRISTIQ [Concomitant]
  3. NEXIUM [Suspect]
     Route: 048
  4. XANAX [Concomitant]
  5. STRATTERA [Concomitant]
  6. CRESTOR [Suspect]
     Route: 048
  7. CYMBALTA [Concomitant]
  8. VITAMIN TAB [Concomitant]

REACTIONS (3)
  - CEREBROVASCULAR ACCIDENT [None]
  - FLATULENCE [None]
  - DRUG DOSE OMISSION [None]
